FAERS Safety Report 19584595 (Version 1)
Quarter: 2021Q3

REPORT INFORMATION
  Report Type: Report from Study
  Country: CO (occurrence: CO)
  Receive Date: 20210720
  Receipt Date: 20210720
  Transmission Date: 20211014
  Serious: Yes (Other)
  Sender: FDA-Public Use
  Company Number: CO-COLLEGIUM PHARMACEUTICAL, INC.-2021CGM00853

PATIENT
  Age: 84 Year
  Sex: Female

DRUGS (1)
  1. TAPENTADOL [Suspect]
     Active Substance: TAPENTADOL
     Indication: PAIN
     Dosage: 150 MG, 1X/DAY
     Dates: start: 20210525

REACTIONS (1)
  - Brain hypoxia [Unknown]

NARRATIVE: CASE EVENT DATE: 2021
